FAERS Safety Report 20200125 (Version 2)
Quarter: 2021Q4

REPORT INFORMATION
  Report Type: Spontaneous
  Country: TW (occurrence: TW)
  Receive Date: 20211217
  Receipt Date: 20211228
  Transmission Date: 20220303
  Serious: Yes (Other)
  Sender: FDA-Public Use
  Company Number: TW-BAYER-2021A268495

PATIENT
  Age: 14 Year
  Sex: Female

DRUGS (2)
  1. VITRAKVI [Suspect]
     Active Substance: LAROTRECTINIB
     Indication: Soft tissue sarcoma
     Dosage: 100 MG, BID
     Dates: start: 20211029, end: 20211029
  2. VITRAKVI [Suspect]
     Active Substance: LAROTRECTINIB
     Indication: Soft tissue sarcoma
     Dosage: 100 MG, BID
     Dates: start: 20211215, end: 20211215

REACTIONS (3)
  - Intestinal obstruction [Recovered/Resolved]
  - Abdominal pain [Recovered/Resolved]
  - Vomiting [Recovered/Resolved]

NARRATIVE: CASE EVENT DATE: 20211215
